FAERS Safety Report 9879777 (Version 1)
Quarter: 2014Q1

REPORT INFORMATION
  Report Type: Spontaneous
  Country: US (occurrence: US)
  Receive Date: 20140206
  Receipt Date: 20140206
  Transmission Date: 20141002
  Serious: No
  Sender: FDA-Public Use
  Company Number: US-009507513-1401USA014601

PATIENT
  Age: 58 Year
  Sex: Female

DRUGS (2)
  1. MAXALT [Suspect]
     Indication: MIGRAINE
     Dosage: UNK
     Route: 048
     Dates: start: 2011, end: 2011
  2. XANAX [Concomitant]

REACTIONS (2)
  - Anaphylactic reaction [Recovered/Resolved]
  - Drug ineffective [Recovered/Resolved]
